FAERS Safety Report 15316233 (Version 1)
Quarter: 2018Q3

REPORT INFORMATION
  Report Type: Spontaneous
  Country: US (occurrence: US)
  Receive Date: 20180816
  Receipt Date: 20180816
  Transmission Date: 20181010
  Serious: Yes (Other)
  Sender: FDA-Public Use
  Company Number: None

PATIENT
  Age: 32 Year
  Sex: Female
  Weight: 66.15 kg

DRUGS (9)
  1. VENLAFAXINE HCL [Suspect]
     Active Substance: VENLAFAXINE HYDROCHLORIDE
     Indication: DEPRESSION
     Dosage: ?          QUANTITY:1 TABLET(S);?
     Route: 048
     Dates: start: 20180813, end: 20180815
  2. MULTI VITAMIN [Concomitant]
     Active Substance: VITAMINS
  3. SPIRONOLACTONE. [Concomitant]
     Active Substance: SPIRONOLACTONE
  4. LISINOPRIL. [Concomitant]
     Active Substance: LISINOPRIL
  5. WELLBUTRIN [Concomitant]
     Active Substance: BUPROPION HYDROCHLORIDE
  6. ASPIRIN. [Concomitant]
     Active Substance: ASPIRIN
  7. VITAMIN D3 [Concomitant]
     Active Substance: CHOLECALCIFEROL
  8. ADDERALL [Concomitant]
     Active Substance: AMPHETAMINE ASPARTATE\AMPHETAMINE SULFATE\DEXTROAMPHETAMINE SACCHARATE\DEXTROAMPHETAMINE SULFATE
  9. CLONAZEPAM. [Concomitant]
     Active Substance: CLONAZEPAM

REACTIONS (14)
  - Fatigue [None]
  - Initial insomnia [None]
  - Urticaria [None]
  - Headache [None]
  - Vomiting [None]
  - Nausea [None]
  - Tremor [None]
  - Wrong drug administered [None]
  - Asthenia [None]
  - Feeling abnormal [None]
  - Drug interaction [None]
  - Drug dispensing error [None]
  - Serotonin syndrome [None]
  - Impaired work ability [None]

NARRATIVE: CASE EVENT DATE: 20180813
